FAERS Safety Report 4501282-8 (Version None)
Quarter: 2004Q4

REPORT INFORMATION
  Report Type: 
  Country: None (occurrence: None)
  Receive Date: 20041110
  Receipt Date: 20041102
  Transmission Date: 20050328
  Serious: Yes (Other)
  Sender: FDA-Public Use
  Company Number: 2004242155BR

PATIENT
  Age: 40 Year
  Sex: Female

DRUGS (1)
  1. DOSTINEX [Suspect]
     Indication: BRAIN NEOPLASM
     Dosage: 1 TABLET DAILY, ORAL
     Route: 048
     Dates: start: 19990101

REACTIONS (5)
  - ANOREXIA [None]
  - BRAIN NEOPLASM [None]
  - MALAISE [None]
  - NEOPLASM PROGRESSION [None]
  - OEDEMA PERIPHERAL [None]
